FAERS Safety Report 18359316 (Version 1)
Quarter: 2020Q4

REPORT INFORMATION
  Report Type: Spontaneous
  Country: US (occurrence: US)
  Receive Date: 20201008
  Receipt Date: 20201008
  Transmission Date: 20210114
  Serious: No
  Sender: FDA-Public Use
  Company Number: US-INDIVIOR US-INDV-121620-2019

PATIENT
  Sex: Female

DRUGS (2)
  1. SUBOXONE [Suspect]
     Active Substance: BUPRENORPHINE HYDROCHLORIDE\NALOXONE HYDROCHLORIDE
     Indication: PRODUCT USED FOR UNKNOWN INDICATION
     Dosage: UNK
     Route: 065
     Dates: start: 201907, end: 201907
  2. SUBOXONE [Suspect]
     Active Substance: BUPRENORPHINE HYDROCHLORIDE\NALOXONE HYDROCHLORIDE
     Dosage: ONE IN THE MORNING AT 5AM, HALF FILM AT 9.30 TO 10 AM, HALF FILM AT 1PM AND HALF FILM AT 6PM
     Route: 065
     Dates: start: 201907

REACTIONS (10)
  - Drug resistance [Unknown]
  - Therapeutic product effect incomplete [Unknown]
  - Restlessness [Unknown]
  - Fatigue [Unknown]
  - Drug dependence [Unknown]
  - Wrong technique in product usage process [Not Recovered/Not Resolved]
  - Inappropriate schedule of product administration [Not Recovered/Not Resolved]
  - Feeling abnormal [Unknown]
  - Drug withdrawal syndrome [Not Recovered/Not Resolved]
  - Lethargy [Recovered/Resolved]

NARRATIVE: CASE EVENT DATE: 2019
